FAERS Safety Report 19119594 (Version 2)
Quarter: 2021Q2

REPORT INFORMATION
  Report Type: Other
  Country: GR (occurrence: GR)
  Receive Date: 20210412
  Receipt Date: 20210511
  Transmission Date: 20210717
  Serious: Yes (Hospitalization)
  Sender: FDA-Public Use
  Company Number: GR-INVATECH-000056

PATIENT
  Age: 64 Year
  Sex: Female

DRUGS (2)
  1. FOLIC ACID. [Suspect]
     Active Substance: FOLIC ACID
     Indication: TRANSIENT GLOBAL AMNESIA
     Dosage: THREE MONTHS
  2. LEVOTHYROXINE. [Concomitant]
     Active Substance: LEVOTHYROXINE
     Indication: AUTOIMMUNE THYROIDITIS
     Dosage: PER DAY

REACTIONS (2)
  - Cognitive disorder [Unknown]
  - Neuropathy peripheral [Unknown]
